FAERS Safety Report 14675566 (Version 2)
Quarter: 2018Q1

REPORT INFORMATION
  Report Type: Report from Study
  Country: None (occurrence: US)
  Receive Date: 20180323
  Receipt Date: 20180329
  Transmission Date: 20180509
  Serious: Yes (Death)
  Sender: FDA-Public Use
  Company Number: US-ABBVIE-18S-163-2298465-00

PATIENT
  Age: 73 Year
  Sex: Male
  Weight: 44.04 kg

DRUGS (3)
  1. OMEPRAZOLE. [Concomitant]
     Active Substance: OMEPRAZOLE
     Indication: GASTROOESOPHAGEAL REFLUX DISEASE
  2. CREON [Suspect]
     Active Substance: PANCRELIPASE AMYLASE\PANCRELIPASE LIPASE\PANCRELIPASE PROTEASE
     Indication: PANCREATIC CARCINOMA
     Dosage: 3 CAPSULES PER MEAL
     Route: 048
     Dates: start: 201704
  3. ZOLOFT [Concomitant]
     Active Substance: SERTRALINE HYDROCHLORIDE
     Indication: DEPRESSION

REACTIONS (5)
  - Starvation [Fatal]
  - Pancreatic carcinoma [Fatal]
  - Diarrhoea [Fatal]
  - Dehydration [Fatal]
  - Vomiting [Fatal]

NARRATIVE: CASE EVENT DATE: 201704
